FAERS Safety Report 7427065-7 (Version None)
Quarter: 2011Q2

REPORT INFORMATION
  Report Type: 
  Country: None (occurrence: None)
  Receive Date: 20110420
  Receipt Date: 20110412
  Transmission Date: 20111010
  Serious: Yes (Hospitalization)
  Sender: FDA-Public Use
  Company Number: TH-EISAI INC-E2020-09011-SPO-TH

PATIENT
  Age: 70 Year
  Sex: Female
  Weight: 50 kg

DRUGS (2)
  1. ARICEPT [Suspect]
     Indication: VASCULAR DEMENTIA
     Route: 048
     Dates: start: 20110101
  2. ZOLOFT [Concomitant]
     Indication: DEPRESSION
     Dosage: 50 MG
     Route: 048
     Dates: start: 20110101

REACTIONS (1)
  - VENTRICULAR TACHYCARDIA [None]
